FAERS Safety Report 7275191-8 (Version None)
Quarter: 2011Q1

REPORT INFORMATION
  Report Type: 
  Country: None (occurrence: None)
  Receive Date: 20110204
  Receipt Date: 20110126
  Transmission Date: 20110831
  Serious: Yes (Death, Hospitalization, Other)
  Sender: FDA-Public Use
  Company Number: PHHY2009JP47062

PATIENT
  Sex: Male
  Weight: 45 kg

DRUGS (3)
  1. FLUOROURACIL [Suspect]
     Indication: GASTROINTESTINAL CARCINOMA
     Dosage: 100 MG DAILY
     Route: 048
  2. PREDNISOLONE [Suspect]
     Indication: PEMPHIGOID
     Dosage: 18 MG DAILY
     Route: 048
  3. NEORAL [Suspect]
     Indication: PEMPHIGOID
     Dosage: 50 MG, QD
     Route: 048
     Dates: start: 20080816, end: 20090109

REACTIONS (14)
  - OEDEMA PERIPHERAL [None]
  - SCAB [None]
  - SUBCUTANEOUS ABSCESS [None]
  - GAMMA-GLUTAMYLTRANSFERASE INCREASED [None]
  - BLOOD LACTATE DEHYDROGENASE INCREASED [None]
  - BLOOD ALKALINE PHOSPHATASE INCREASED [None]
  - EXTRADURAL HAEMATOMA [None]
  - FALL [None]
  - SUBDURAL HAEMATOMA [None]
  - LOSS OF CONSCIOUSNESS [None]
  - LYMPHADENOPATHY [None]
  - PURULENT DISCHARGE [None]
  - GAIT DISTURBANCE [None]
  - CHROMOBLASTOMYCOSIS [None]
